FAERS Safety Report 12122096 (Version 2)
Quarter: 2016Q1

REPORT INFORMATION
  Report Type: Spontaneous
  Country: US (occurrence: US)
  Receive Date: 20160226
  Receipt Date: 20160226
  Transmission Date: 20160526
  Serious: Yes (Other)
  Sender: FDA-Public Use
  Company Number: US-ABBVIE-15P-163-1487592-00

PATIENT
  Age: 59 Year
  Sex: Male
  Weight: 99.88 kg

DRUGS (33)
  1. GABAPENTIN. [Concomitant]
     Active Substance: GABAPENTIN
     Indication: NEUROPATHY PERIPHERAL
     Dates: start: 2000
  2. COSOPT [Concomitant]
     Active Substance: DORZOLAMIDE HYDROCHLORIDE\TIMOLOL MALEATE
     Indication: EYE DISORDER
     Dates: start: 200212, end: 201012
  3. LIPITOR [Concomitant]
     Active Substance: ATORVASTATIN CALCIUM
     Indication: BLOOD CHOLESTEROL INCREASED
     Route: 048
     Dates: start: 200102, end: 200502
  4. AMOXICILLIN. [Concomitant]
     Active Substance: AMOXICILLIN
     Indication: PRODUCT USED FOR UNKNOWN INDICATION
     Dates: start: 200405
  5. LISINOPRIL. [Concomitant]
     Active Substance: LISINOPRIL
     Indication: HYPERTENSION
     Dates: start: 1995
  6. NPH INSULIN [Concomitant]
     Active Substance: INSULIN BEEF
     Indication: DIABETES MELLITUS
     Dosage: 100 UNIT/ML SUSP
     Dates: start: 1995
  7. SIMVASTATIN. [Concomitant]
     Active Substance: SIMVASTATIN
     Indication: HYPERLIPIDAEMIA
  8. ALPHAGAN P [Concomitant]
     Active Substance: BRIMONIDINE TARTRATE
     Indication: EYE DISORDER
     Dosage: TWICE A DAY EACH EYE
     Route: 047
     Dates: end: 20101210
  9. MUSE [Concomitant]
     Active Substance: ALPROSTADIL
     Indication: PRODUCT USED FOR UNKNOWN INDICATION
     Dosage: URETHRAL SUPPOSITORY
     Dates: start: 200405
  10. ISOPTO HOMATROPINE [Concomitant]
     Active Substance: HOMATROPINE HYDROBROMIDE
     Indication: PRODUCT USED FOR UNKNOWN INDICATION
     Dates: start: 200508
  11. IRON [Concomitant]
     Active Substance: IRON
     Indication: ANAEMIA
     Dates: start: 201312, end: 201511
  12. LUMIGAN [Concomitant]
     Active Substance: BIMATOPROST
     Indication: EYE DISORDER
     Dosage: TWICE A DAY EACH EYE
     Route: 047
  13. MELOXICAM. [Concomitant]
     Active Substance: MELOXICAM
     Indication: PRODUCT USED FOR UNKNOWN INDICATION
     Route: 048
     Dates: start: 20100315
  14. LOTEMAX [Concomitant]
     Active Substance: LOTEPREDNOL ETABONATE
     Indication: EYE DISORDER
     Route: 047
     Dates: start: 2006
  15. PREDNISOLONE ACETATE. [Concomitant]
     Active Substance: PREDNISOLONE ACETATE
     Indication: PRODUCT USED FOR UNKNOWN INDICATION
     Dates: start: 200508
  16. ANDROGEL [Suspect]
     Active Substance: TESTOSTERONE
     Indication: ANDROGEN REPLACEMENT THERAPY
     Route: 061
     Dates: start: 200403, end: 200803
  17. ACTOS [Suspect]
     Active Substance: PIOGLITAZONE HYDROCHLORIDE
     Indication: TYPE 2 DIABETES MELLITUS
     Route: 048
     Dates: start: 200510, end: 200808
  18. INSULIN GLARGINE [Concomitant]
     Active Substance: INSULIN GLARGINE
     Indication: DIABETES MELLITUS
     Dosage: 100 UNITS/ML SOLN
     Dates: start: 1995
  19. VYTORIN [Concomitant]
     Active Substance: EZETIMIBE\SIMVASTATIN
     Indication: BLOOD CHOLESTEROL INCREASED
     Dates: start: 200501, end: 200901
  20. HUMULIN N [Concomitant]
     Active Substance: INSULIN HUMAN
     Indication: DIABETES MELLITUS
  21. ANDRODERM [Suspect]
     Active Substance: TESTOSTERONE
     Indication: ANDROGEN REPLACEMENT THERAPY
     Dosage: 24 HOUR PATCH
     Route: 062
     Dates: start: 200401, end: 200404
  22. INSULIN [Concomitant]
     Active Substance: INSULIN NOS
     Indication: DIABETES MELLITUS
     Dates: start: 1995
  23. ALLEGRA [Concomitant]
     Active Substance: FEXOFENADINE HYDROCHLORIDE
     Indication: PRODUCT USED FOR UNKNOWN INDICATION
  24. VITAMIN D [Concomitant]
     Active Substance: CHOLECALCIFEROL
     Indication: DIABETES MELLITUS
     Dates: start: 201105
  25. GLIMEPIRIDE. [Concomitant]
     Active Substance: GLIMEPIRIDE
     Indication: DIABETES MELLITUS
     Dates: start: 1995
  26. ATORVASTATIN CALCIUM. [Concomitant]
     Active Substance: ATORVASTATIN CALCIUM
     Indication: BLOOD CHOLESTEROL INCREASED
     Dates: start: 1995
  27. ATENOLOL. [Concomitant]
     Active Substance: ATENOLOL
     Indication: HYPERTENSION
     Dates: start: 200603, end: 200604
  28. TRAMADOL HCL [Concomitant]
     Active Substance: TRAMADOL HYDROCHLORIDE
     Indication: PAIN
     Route: 048
     Dates: start: 20100326
  29. ZYMAR [Concomitant]
     Active Substance: GATIFLOXACIN
     Indication: PRODUCT USED FOR UNKNOWN INDICATION
     Dates: start: 200508
  30. ANDROGEL [Suspect]
     Active Substance: TESTOSTERONE
     Indication: HYPOGONADISM
  31. LEVOTHYROXINE SODIUM. [Concomitant]
     Active Substance: LEVOTHYROXINE SODIUM
     Indication: THYROID DISORDER
     Dates: start: 2005
  32. CRANBERRY. [Concomitant]
     Active Substance: CRANBERRY
     Indication: RENAL DISORDER
     Dates: start: 201312, end: 201510
  33. ACULAR LS [Concomitant]
     Active Substance: KETOROLAC TROMETHAMINE
     Indication: PRODUCT USED FOR UNKNOWN INDICATION
     Dates: start: 200508

REACTIONS (86)
  - Chest pain [Unknown]
  - Diabetes mellitus [Unknown]
  - Arthropathy [Unknown]
  - Arthralgia [Unknown]
  - Venous thrombosis [Unknown]
  - Formication [Unknown]
  - Gait disturbance [Unknown]
  - Vertebral foraminal stenosis [Unknown]
  - Osteoporosis [Unknown]
  - Conjunctival filtering bleb leak [Unknown]
  - Intraocular pressure test abnormal [Unknown]
  - Retinal vascular thrombosis [Unknown]
  - Peripheral swelling [Unknown]
  - Fatigue [Unknown]
  - Joint range of motion decreased [Unknown]
  - Peripheral swelling [Unknown]
  - Tinnitus [Unknown]
  - Otitis externa [Unknown]
  - Large intestine polyp [Unknown]
  - Musculoskeletal pain [Unknown]
  - Hypoaesthesia [Unknown]
  - Exostosis [Unknown]
  - Bone lesion [Unknown]
  - Vascular calcification [Unknown]
  - Glaucoma [Unknown]
  - Electrocardiogram abnormal [Unknown]
  - Renal impairment [Unknown]
  - Musculoskeletal pain [Unknown]
  - Osteoarthritis [Unknown]
  - Obesity [Unknown]
  - Blood pressure increased [Unknown]
  - Osteoarthritis [Unknown]
  - Renal function test abnormal [Unknown]
  - Diverticulum [Unknown]
  - Haemorrhoids [Unknown]
  - Pulmonary embolism [Unknown]
  - Deep vein thrombosis [Unknown]
  - Cerumen impaction [Unknown]
  - Joint dislocation [Unknown]
  - Drug level decreased [Unknown]
  - Blood potassium increased [Unknown]
  - Hypergammaglobulinaemia benign monoclonal [Unknown]
  - Herpes zoster [Unknown]
  - Myocardial infarction [Unknown]
  - Deep vein thrombosis [Unknown]
  - Proteinuria [Unknown]
  - Back pain [Unknown]
  - Herpes zoster [Unknown]
  - Blood creatinine increased [Unknown]
  - Renal impairment [Unknown]
  - Post herpetic neuralgia [Unknown]
  - Joint swelling [Unknown]
  - Osteoarthritis [Unknown]
  - Pain in extremity [Unknown]
  - Intervertebral disc space narrowing [Unknown]
  - Hyporeflexia [Unknown]
  - Nephrogenic anaemia [Unknown]
  - Renal impairment [Unknown]
  - Iridectomy [Unknown]
  - Musculoskeletal pain [Unknown]
  - Peripheral swelling [Unknown]
  - Glomerular filtration rate decreased [Unknown]
  - Feeling hot [Unknown]
  - Pain in extremity [Unknown]
  - Gingival bleeding [Unknown]
  - Joint effusion [Unknown]
  - Joint injury [Unknown]
  - Hypertension [Unknown]
  - Blood cholesterol increased [Unknown]
  - Back pain [Unknown]
  - Brachial plexus injury [Unknown]
  - Spinal fusion acquired [Unknown]
  - Eye inflammation [Unknown]
  - Vitreous haemorrhage [Unknown]
  - Atrioventricular block first degree [Unknown]
  - Drug ineffective [Unknown]
  - Hypoglycaemia [Unknown]
  - Musculoskeletal pain [Unknown]
  - Abdominal pain upper [Unknown]
  - Joint injury [Unknown]
  - Proteinuria [Unknown]
  - Iris atrophy [Unknown]
  - Blood testosterone decreased [Unknown]
  - Anaemia [Unknown]
  - Vertebral foraminal stenosis [Unknown]
  - Sinus bradycardia [Unknown]

NARRATIVE: CASE EVENT DATE: 200503
